FAERS Safety Report 24244129 (Version 1)
Quarter: 2024Q3

REPORT INFORMATION
  Report Type: Spontaneous
  Country: US (occurrence: None)
  Receive Date: 20240823
  Receipt Date: 20240823
  Transmission Date: 20241017
  Serious: Yes (Hospitalization, Other)
  Sender: Public
  Company Number: None

PATIENT
  Age: 67 Year
  Sex: Female

DRUGS (1)
  1. TYMLOS [Suspect]
     Active Substance: ABALOPARATIDE
     Indication: Senile osteoporosis
     Dosage: OTHER STRENGTH : 3120 MCG;?OTHER QUANTITY : 80 MCG;?FREQUENCY : DAILY;?
     Route: 058

REACTIONS (1)
  - Myocardial infarction [None]
